FAERS Safety Report 5766157-5 (Version None)
Quarter: 2008Q2

REPORT INFORMATION
  Report Type: 
  Country: None (occurrence: None)
  Receive Date: 20080605
  Receipt Date: 20080520
  Transmission Date: 20081010
  Serious: Yes (Life-Threatening)
  Sender: FDA-Public Use
  Company Number: 2008S1008540

PATIENT
  Age: 69 Year
  Sex: Male

DRUGS (6)
  1. CLOPIDOGREL [Suspect]
     Indication: THROMBOSIS PROPHYLAXIS
     Dosage: 75 MG;DAILY
  2. ABCIXIMAB (ABCIXIMAB) [Concomitant]
  3. ASPIRIN [Concomitant]
  4. CLARITHROMYCIN [Suspect]
     Indication: MYCOBACTERIUM AVIUM COMPLEX INFECTION
     Dates: start: 20030501
  5. RIFAMPICIN [Suspect]
     Indication: MYCOBACTERIUM AVIUM COMPLEX INFECTION
     Dates: start: 20030501
  6. ETHAMBUTOL (ETHAMBUTOL) DOSE, FORM, ROUTE AND FREQUENCY UNKNOWN:UNKNOW [Suspect]
     Indication: MYCOBACTERIUM AVIUM COMPLEX INFECTION
     Dates: start: 20030501

REACTIONS (4)
  - ACUTE MYOCARDIAL INFARCTION [None]
  - DRUG INTERACTION [None]
  - DRUG RESISTANCE [None]
  - THROMBOSIS IN DEVICE [None]
